FAERS Safety Report 19848595 (Version 2)
Quarter: 2021Q3

REPORT INFORMATION
  Report Type: Spontaneous
  Country: ES (occurrence: ES)
  Receive Date: 20210918
  Receipt Date: 20210921
  Transmission Date: 20211014
  Serious: Yes (Other)
  Sender: FDA-Public Use
  Company Number: ES-CELLTRION INC.-2021ES012527

PATIENT

DRUGS (2)
  1. BENDAMUSTINE HYDROCHLORIDE. [Suspect]
     Active Substance: BENDAMUSTINE HYDROCHLORIDE
     Indication: B-CELL LYMPHOMA
     Dosage: CYCLE; 100?90 MG/M2 ON DAYS DAY 1?2 IN 28 DAY CYCLE, CYCLIC (4 CYCLES)
     Route: 042
  2. RITUXIMAB. [Suspect]
     Active Substance: RITUXIMAB
     Indication: B-CELL LYMPHOMA
     Dosage: 375 MG/M2, CYCLIC (ON DAY 1 IN 28?DAY CYCLE, 4 CYCLES)
     Route: 065

REACTIONS (3)
  - CD4 lymphocytes decreased [Unknown]
  - Product use issue [Unknown]
  - Off label use [Unknown]
